FAERS Safety Report 5745902-9 (Version None)
Quarter: 2008Q2

REPORT INFORMATION
  Report Type: 
  Country: None (occurrence: None)
  Receive Date: 20080520
  Receipt Date: 20080502
  Transmission Date: 20081010
  Serious: Yes (Hospitalization)
  Sender: FDA-Public Use
  Company Number: 2008US001287

PATIENT
  Age: 75 Year
  Sex: 0

DRUGS (7)
  1. VESICARE [Suspect]
     Indication: POLLAKIURIA
     Dosage: 5 MG
  2. AGGRENOX [Concomitant]
  3. LIPITOR [Concomitant]
  4. CARDIZEM CD [Concomitant]
  5. SPIRIVA [Concomitant]
  6. ALBUTEROL [Concomitant]
  7. ZOLOFT [Concomitant]

REACTIONS (5)
  - ABDOMINAL PAIN UPPER [None]
  - DIZZINESS [None]
  - DRY MOUTH [None]
  - FALL [None]
  - HALLUCINATION [None]
